FAERS Safety Report 17981336 (Version 1)
Quarter: 2020Q3

REPORT INFORMATION
  Report Type: Spontaneous
  Country: US (occurrence: US)
  Receive Date: 20200705
  Receipt Date: 20200705
  Transmission Date: 20201103
  Serious: Yes (Hospitalization)
  Sender: FDA-Public Use
  Company Number: US-BRISTOL-MYERS SQUIBB COMPANY-BMS-2020-050981

PATIENT
  Sex: Male
  Weight: 77.11 kg

DRUGS (1)
  1. ELIQUIS [Suspect]
     Active Substance: APIXABAN
     Indication: THROMBOSIS PROPHYLAXIS
     Dosage: 5 MILLIGRAM, Q12H
     Route: 048

REACTIONS (4)
  - Diarrhoea [Recovering/Resolving]
  - COVID-19 pneumonia [Recovering/Resolving]
  - Prescribed overdose [Unknown]
  - Decreased appetite [Recovering/Resolving]
